FAERS Safety Report 5035559-7 (Version None)
Quarter: 2006Q2

REPORT INFORMATION
  Report Type: 
  Country: None (occurrence: None)
  Receive Date: 20060627
  Receipt Date: 20060616
  Transmission Date: 20061013
  Serious: Yes (Hospitalization, Other)
  Sender: FDA-Public Use
  Company Number: JP-JNJFOC-20060604720

PATIENT
  Sex: Female
  Weight: 46 kg

DRUGS (30)
  1. REMICADE [Suspect]
     Route: 042
  2. REMICADE [Suspect]
     Route: 042
  3. REMICADE [Suspect]
     Route: 042
  4. REMICADE [Suspect]
     Route: 042
  5. REMICADE [Suspect]
     Route: 042
  6. REMICADE [Suspect]
     Route: 042
  7. REMICADE [Suspect]
     Route: 042
  8. REMICADE [Suspect]
     Route: 042
  9. REMICADE [Suspect]
     Indication: RHEUMATOID ARTHRITIS
     Route: 042
  10. RHEUMATREX [Concomitant]
     Dosage: TEMPORARILY, 4 MG/WEEK AND 8 MG/WEEK
     Route: 048
  11. RHEUMATREX [Concomitant]
     Route: 048
  12. RHEUMATREX [Concomitant]
     Route: 048
  13. RHEUMATREX [Concomitant]
     Indication: RHEUMATOID ARTHRITIS
     Route: 048
  14. KENACORT [Concomitant]
     Indication: RHEUMATOID ARTHRITIS
     Dosage: ROUTE: ^IR^
  15. METHOTREXATE [Concomitant]
     Dosage: START DATE: LATE APR-2005
     Route: 048
  16. METHOTREXATE [Concomitant]
     Indication: RHEUMATOID ARTHRITIS
     Route: 048
  17. MEDROL [Concomitant]
     Indication: RHEUMATOID ARTHRITIS
     Route: 048
  18. METALCAPTASE [Concomitant]
     Indication: RHEUMATOID ARTHRITIS
     Route: 048
  19. VOLTAREN [Concomitant]
     Indication: RHEUMATOID ARTHRITIS
     Route: 054
  20. FOLIAMIN [Concomitant]
     Route: 048
  21. BONALON [Concomitant]
     Route: 048
  22. CYANOCOBALAMIN [Concomitant]
     Route: 048
  23. ALFAROL [Concomitant]
     Dosage: DOSE: 0.5 RG
     Route: 048
  24. MUCOSTA [Concomitant]
     Route: 048
  25. PYDOXAL [Concomitant]
     Route: 048
  26. CINAL [Concomitant]
     Route: 048
  27. METHYLPREDNISOLONE [Concomitant]
     Dosage: DOSE: 6-5 MG
     Route: 065
  28. METHYLPREDNISOLONE [Concomitant]
     Indication: RHEUMATOID ARTHRITIS
     Route: 065
  29. WARFARIN SODIUM [Concomitant]
     Route: 048
  30. UNKNOWN RHEUMATOID ARTHRITIS MEDICATION [Concomitant]
     Indication: RHEUMATOID ARTHRITIS
     Route: 065

REACTIONS (13)
  - ALANINE AMINOTRANSFERASE INCREASED [None]
  - ANAEMIA [None]
  - ASPARTATE AMINOTRANSFERASE INCREASED [None]
  - BETA HAEMOLYTIC STREPTOCOCCAL INFECTION [None]
  - BLOOD CREATINE PHOSPHOKINASE INCREASED [None]
  - BLOOD LACTATE DEHYDROGENASE INCREASED [None]
  - HEPATIC FUNCTION ABNORMAL [None]
  - INFECTED SKIN ULCER [None]
  - NECROTISING FASCIITIS STREPTOCOCCAL [None]
  - PROTHROMBIN TIME PROLONGED [None]
  - PRURITUS [None]
  - RASH [None]
  - SKIN ULCER [None]
